FAERS Safety Report 4701976-5 (Version None)
Quarter: 2005Q2

REPORT INFORMATION
  Report Type: 
  Country: None (occurrence: None)
  Receive Date: 20050628
  Receipt Date: 20050309
  Transmission Date: 20051028
  Serious: Yes (Hospitalization, Disabling)
  Sender: FDA-Public Use
  Company Number: US-MERCK-0503USA01772

PATIENT
  Age: 50 Year
  Sex: Male
  Weight: 125 kg

DRUGS (10)
  1. VIOXX [Suspect]
     Indication: GOUT
     Route: 048
     Dates: start: 20001012, end: 20040930
  2. VIOXX [Suspect]
     Indication: ARTHRITIS
     Route: 048
     Dates: start: 20001012, end: 20040930
  3. ACCUPRIL [Concomitant]
     Indication: HYPERTENSION
     Route: 065
     Dates: start: 20000101
  4. TYLENOL [Concomitant]
     Indication: PAIN
     Route: 065
     Dates: start: 19990801
  5. HUMALOG [Concomitant]
     Indication: DIABETES MELLITUS
     Route: 065
     Dates: start: 19930301
  6. HUMALOG [Concomitant]
     Route: 065
     Dates: start: 19930301
  7. ALLOPURINOL [Concomitant]
     Indication: GOUT
     Route: 065
     Dates: start: 19920301
  8. COLCHICINE [Concomitant]
     Indication: RHEUMATOID ARTHRITIS
     Route: 065
     Dates: start: 19990101
  9. KEFLEX [Concomitant]
     Indication: RESPIRATORY TRACT INFECTION
     Route: 065
     Dates: start: 20010101
  10. INDOCIN [Concomitant]
     Route: 065

REACTIONS (34)
  - ACUTE MYOCARDIAL INFARCTION [None]
  - ANHEDONIA [None]
  - BLOOD CALCIUM DECREASED [None]
  - BLOOD CHLORIDE DECREASED [None]
  - BLOOD GLUCOSE INCREASED [None]
  - BLOOD SODIUM DECREASED [None]
  - CARDIAC FAILURE CONGESTIVE [None]
  - CARDIOVASCULAR DISORDER [None]
  - CORONARY ARTERY DISEASE [None]
  - CORONARY ARTERY OCCLUSION [None]
  - DEPRESSION [None]
  - DISABILITY [None]
  - DYSLIPIDAEMIA [None]
  - DYSPNOEA EXERTIONAL [None]
  - ESCHERICHIA URINARY TRACT INFECTION [None]
  - GLYCOSYLATED HAEMOGLOBIN INCREASED [None]
  - HEPATIC ENZYME INCREASED [None]
  - HYPOKALAEMIA [None]
  - INFECTION [None]
  - LEUKOCYTOSIS [None]
  - LOWER RESPIRATORY TRACT INFECTION [None]
  - MYOCARDIAL INFARCTION [None]
  - ORTHOPNOEA [None]
  - PAIN [None]
  - PANIC ATTACK [None]
  - PCO2 DECREASED [None]
  - PRODUCTIVE COUGH [None]
  - PULMONARY HYPERTENSION [None]
  - RENAL FAILURE ACUTE [None]
  - RENAL FAILURE CHRONIC [None]
  - RESPIRATORY TRACT INFECTION [None]
  - SPUTUM DISCOLOURED [None]
  - UROSEPSIS [None]
  - VENTRICULAR TACHYCARDIA [None]
